FAERS Safety Report 8493329-1 (Version None)
Quarter: 2012Q3

REPORT INFORMATION
  Report Type: 
  Country: None (occurrence: None)
  Receive Date: 20120706
  Receipt Date: 20120627
  Transmission Date: 20120928
  Serious: Yes (Hospitalization, Other)
  Sender: FDA-Public Use
  Company Number: JP-VERTEX PHARMACEUTICALS INC.-AE-2012-009720

PATIENT
  Age: 64 Year
  Sex: Male

DRUGS (14)
  1. TELAVIC (TELAPREVIR) [Suspect]
     Route: 048
     Dates: start: 20120222, end: 20120502
  2. TELAVIC (TELAPREVIR) [Suspect]
     Route: 048
     Dates: start: 20120503, end: 20120509
  3. ALLOPURINOL [Concomitant]
     Route: 048
     Dates: start: 20120405, end: 20120515
  4. PEG-INTRON [Concomitant]
     Indication: HEPATITIS C
     Route: 058
     Dates: start: 20120106, end: 20120110
  5. PEG-INTRON [Concomitant]
     Route: 058
     Dates: start: 20120606
  6. TSUMURA JUZENTAIHOTO EXTRACT GRANULES FOR ETHICAL USE [Concomitant]
     Route: 048
     Dates: start: 20120321
  7. TSUMURA JUZENTAIHOTO EXTRACT GRANULES FOR ETHICAL USE [Concomitant]
     Route: 048
  8. TELAVIC (TELAPREVIR) [Suspect]
     Route: 048
     Dates: start: 20120215, end: 20120221
  9. REBETOL [Concomitant]
     Route: 048
     Dates: start: 20120106, end: 20120110
  10. REBETOL [Concomitant]
     Route: 048
     Dates: start: 20120215
  11. PEG-INTRON [Concomitant]
     Route: 058
     Dates: start: 20120229, end: 20120605
  12. ALLOPURINOL [Concomitant]
     Route: 048
     Dates: start: 20120215, end: 20120404
  13. TELAVIC (TELAPREVIR) [Suspect]
     Indication: HEPATITIS C
     Route: 048
     Dates: start: 20120106, end: 20120110
  14. PEG-INTRON [Concomitant]
     Route: 058
     Dates: start: 20120215, end: 20120222

REACTIONS (2)
  - ASCITES [None]
  - PLATELET COUNT DECREASED [None]
